FAERS Safety Report 14642080 (Version 1)
Quarter: 2018Q1

REPORT INFORMATION
  Report Type: Spontaneous
  Country: US (occurrence: US)
  Receive Date: 20180315
  Receipt Date: 20180315
  Transmission Date: 20180509
  Serious: Yes (Hospitalization)
  Sender: FDA-Public Use
  Company Number: None

PATIENT
  Age: 57 Year
  Sex: Male

DRUGS (4)
  1. NEXIUM, HYDROCO/APAP, GABAPENTIN, CENTRUM, VITAMIN D, [Concomitant]
  2. ASPIRIN, LIDOCANE. [Concomitant]
  3. TESTOPEL [Suspect]
     Active Substance: TESTOSTERONE
     Indication: TESTICULAR FAILURE
     Dosage: ?          OTHER FREQUENCY:EVERY 4 MTHS;?
     Route: 058
     Dates: start: 20170802
  4. NITROGLYCERIN, LEXAPRO, ESCITALOPRAM, ATORVASTATIN, FLUTICASONE [Concomitant]

REACTIONS (3)
  - Cardiac disorder [None]
  - Chest pain [None]
  - Dyspnoea [None]

NARRATIVE: CASE EVENT DATE: 20171201
